FAERS Safety Report 7970655-3 (Version None)
Quarter: 2011Q4

REPORT INFORMATION
  Report Type: 
  Country: None (occurrence: None)
  Receive Date: 20111212
  Receipt Date: 20111206
  Transmission Date: 20120403
  Serious: Yes (Hospitalization)
  Sender: FDA-Public Use
  Company Number: US-VERTEX PHARMACEUTICALS INC.-AE-2011-001384

PATIENT
  Sex: Female
  Weight: 50.848 kg

DRUGS (8)
  1. ASPIRIN [Concomitant]
  2. PEGASYS [Concomitant]
     Indication: HEPATITIS C
     Route: 058
     Dates: start: 20110902, end: 20110909
  3. SYNTHROID [Concomitant]
  4. CALCIUM [Concomitant]
  5. INCIVEK [Suspect]
     Indication: HEPATITIS C
     Route: 048
     Dates: start: 20110902, end: 20110909
  6. LIPITOR [Concomitant]
  7. RIBAVIRIN [Concomitant]
     Indication: HEPATITIS C
     Dates: start: 20110902, end: 20110909
  8. MILK THISTLE [Concomitant]

REACTIONS (6)
  - VOMITING [None]
  - INAPPROPRIATE ANTIDIURETIC HORMONE SECRETION [None]
  - DECREASED APPETITE [None]
  - SUBDURAL HAEMATOMA [None]
  - NAUSEA [None]
  - MENTAL STATUS CHANGES [None]
